FAERS Safety Report 7739333-X (Version None)
Quarter: 2011Q3

REPORT INFORMATION
  Report Type: 
  Country: None (occurrence: None)
  Receive Date: 20110909
  Receipt Date: 20110830
  Transmission Date: 20111222
  Serious: Yes (Hospitalization)
  Sender: FDA-Public Use
  Company Number: DE-UCBSA-013327

PATIENT
  Age: 70 Year
  Sex: Female
  Weight: 87 kg

DRUGS (16)
  1. OXAZEPAM [Concomitant]
     Indication: DEPRESSION
     Dosage: UP TO 3 X 10 MG DAILY, PRN
     Dates: start: 20091001
  2. PREDNISOLONE [Concomitant]
     Indication: RHEUMATOID ARTHRITIS
     Dates: start: 20090301
  3. CELEBREX [Concomitant]
     Indication: RHEUMATOID ARTHRITIS
     Dates: start: 20091216
  4. ASPIRIN [Concomitant]
     Indication: ATRIAL FIBRILLATION
     Dates: start: 20090101
  5. RAMIPRIL [Concomitant]
     Indication: HYPERTENSION
     Dosage: ROUTE: 144
     Dates: start: 20090101
  6. TORSEMIDE [Concomitant]
     Indication: HYPERTENSION
     Dosage: 20MG IN THE MORNING, 10MG AT NOON
     Dates: start: 20090101
  7. METOPROLOL SUCCINATE [Concomitant]
     Indication: HYPERTENSION
     Dates: start: 20090101
  8. ERGOCALCIFEROL [Concomitant]
     Indication: OSTEOPENIA
     Dosage: 1000 ONCE DAILY
     Dates: start: 20100129
  9. CALCILAC KT [Concomitant]
     Indication: OSTEOPENIA
     Dosage: 1250MG/400IE ONCE IN THE MORNING
     Dates: start: 20090129
  10. SIMVASTATION [Concomitant]
     Indication: HYPERLIPIDAEMIA
     Dates: start: 20090101
  11. ETA [Concomitant]
     Dates: start: 20100801
  12. CERTOLIZUMAB PEGOL [Suspect]
     Indication: RHEUMATOID ARTHRITIS
     Route: 058
     Dates: start: 20100504, end: 20100531
  13. METOPROLOL SUCCINATE [Concomitant]
     Indication: ATRIAL FIBRILLATION
     Dates: start: 20090101
  14. NEXIUM [Concomitant]
     Indication: OESOPHAGITIS
     Dates: start: 20090101
  15. TAUREDON [Concomitant]
     Dates: start: 20100201, end: 20100401
  16. GOLD P [Concomitant]
     Dates: start: 20100201, end: 20100401

REACTIONS (1)
  - RASH VESICULAR [None]
